FAERS Safety Report 9468675 (Version 2)
Quarter: 2013Q3

REPORT INFORMATION
  Report Type: Spontaneous
  Country: US (occurrence: None)
  Receive Date: 20130814
  Receipt Date: 20130904
  Transmission Date: 20140515
  Serious: Yes (Hospitalization)
  Sender: FDA-Public Use
  Company Number: 2013P1016474

PATIENT
  Age: 62 Year
  Sex: Male

DRUGS (6)
  1. INFUMORPH [Suspect]
     Indication: POST LAMINECTOMY SYNDROME
  2. INFUMORPH [Suspect]
     Indication: PAIN
  3. MORPHINE [Suspect]
     Indication: POST LAMINECTOMY SYNDROME
  4. MORPHINE [Suspect]
     Indication: PAIN
  5. BUPIVACAINE [Suspect]
     Indication: POST LAMINECTOMY SYNDROME
  6. BUPIVACAINE [Suspect]
     Indication: PAIN

REACTIONS (11)
  - Overdose [None]
  - Pruritus [None]
  - Malaise [None]
  - Incorrect route of drug administration [None]
  - Flushing [None]
  - Urticaria [None]
  - Hypopnoea [None]
  - Lethargy [None]
  - Back pain [None]
  - Muscle twitching [None]
  - Hyperhidrosis [None]
